FAERS Safety Report 15345038 (Version 2)
Quarter: 2018Q3

REPORT INFORMATION
  Report Type: Report from Study
  Country: US (occurrence: US)
  Receive Date: 20180903
  Receipt Date: 20180924
  Transmission Date: 20181010
  Serious: No
  Sender: FDA-Public Use
  Company Number: US-ALEXION PHARMACEUTICALS INC.-A201811094

PATIENT
  Sex: Male

DRUGS (2)
  1. VITAMIN D                          /00107901/ [Concomitant]
     Active Substance: ERGOCALCIFEROL
     Indication: PRODUCT USED FOR UNKNOWN INDICATION
     Dosage: 5000 IU, QD
     Route: 065
  2. STRENSIQ [Suspect]
     Active Substance: ASFOTASE ALFA
     Indication: HYPOPHOSPHATASIA
     Dosage: UNK, TIW
     Route: 058

REACTIONS (9)
  - Feeling abnormal [Not Recovered/Not Resolved]
  - Hypertension [Recovered/Resolved]
  - Pain in extremity [Recovering/Resolving]
  - Costovertebral angle tenderness [Recovered/Resolved]
  - Memory impairment [Not Recovered/Not Resolved]
  - Arthralgia [Recovered/Resolved]
  - Oedema peripheral [Not Recovered/Not Resolved]
  - Plantar fasciitis [Not Recovered/Not Resolved]
  - Arthritis [Not Recovered/Not Resolved]
